FAERS Safety Report 10103074 (Version 2)
Quarter: 2014Q2

REPORT INFORMATION
  Report Type: Spontaneous
  Country: US (occurrence: US)
  Receive Date: 20140424
  Receipt Date: 20140501
  Transmission Date: 20141212
  Serious: Yes (Hospitalization)
  Sender: FDA-Public Use
  Company Number: US-GLAXOSMITHKLINE-A1050046A

PATIENT
  Age: 76 Year
  Sex: Female

DRUGS (8)
  1. IMITREX [Suspect]
     Indication: MIGRAINE
     Route: 065
  2. IMITREX [Suspect]
     Indication: MIGRAINE
     Route: 045
     Dates: start: 20100921
  3. IMITREX [Suspect]
     Indication: MIGRAINE
     Route: 058
  4. ANTIDEPRESSANT [Suspect]
  5. ANTI-ANXIETY MED- NAME UNKNOWN [Concomitant]
  6. ZOCOR [Concomitant]
  7. TENORMIN [Concomitant]
  8. FIORICET [Concomitant]

REACTIONS (7)
  - Hip arthroplasty [Unknown]
  - Malaise [Not Recovered/Not Resolved]
  - Somnolence [Recovered/Resolved]
  - Fatigue [Unknown]
  - Drug ineffective [Unknown]
  - Drug administration error [Unknown]
  - Feeling abnormal [Unknown]
